FAERS Safety Report 14195205 (Version 1)
Quarter: 2017Q4

REPORT INFORMATION
  Report Type: Spontaneous
  Country: US (occurrence: None)
  Receive Date: 20171115
  Receipt Date: 20171115
  Transmission Date: 20180321
  Serious: Yes (Death)
  Sender: FDA-Public Use
  Company Number: None

PATIENT
  Age: 84 Year
  Sex: Female

DRUGS (1)
  1. PROLIA [Suspect]
     Active Substance: DENOSUMAB
     Indication: OSTEOPOROSIS
     Dosage: INJECT 60MG (1ML) EVERY 6 MONTHS SUBCUTANEOUSLY
     Route: 058
     Dates: start: 20110224, end: 20170426

REACTIONS (2)
  - Vomiting [None]
  - Asphyxia [None]

NARRATIVE: CASE EVENT DATE: 20171113
